FAERS Safety Report 7202355-1 (Version None)
Quarter: 2010Q4

REPORT INFORMATION
  Report Type: 
  Country: None (occurrence: None)
  Receive Date: 20101229
  Receipt Date: 20101221
  Transmission Date: 20110411
  Serious: Yes (Other)
  Sender: FDA-Public Use
  Company Number: US-PFIZER INC-2010178462

PATIENT
  Sex: Male

DRUGS (1)
  1. ADVIL [Suspect]

REACTIONS (2)
  - HAEMATOCHEZIA [None]
  - OVERDOSE [None]
